FAERS Safety Report 5564159-5 (Version None)
Quarter: 2007Q4

REPORT INFORMATION
  Report Type: 
  Country: None (occurrence: None)
  Receive Date: 20071217
  Receipt Date: 20071205
  Transmission Date: 20080405
  Serious: Yes (Other)
  Sender: FDA-Public Use
  Company Number: US-PFIZER INC-2007104173

PATIENT
  Sex: Male
  Weight: 83.636 kg

DRUGS (5)
  1. CHANTIX [Suspect]
     Indication: SMOKING CESSATION THERAPY
  2. VALIUM [Concomitant]
  3. LORTAB [Concomitant]
  4. DIAZEPAM [Concomitant]
  5. ALBUTEROL [Concomitant]

REACTIONS (8)
  - AGITATION [None]
  - ANGER [None]
  - DRUG INEFFECTIVE [None]
  - INSOMNIA [None]
  - IRRITABILITY [None]
  - MEDICATION ERROR [None]
  - MOOD SWINGS [None]
  - SURGERY [None]
